FAERS Safety Report 20462826 (Version 1)
Quarter: 2022Q1

REPORT INFORMATION
  Report Type: Spontaneous
  Country: DK (occurrence: DK)
  Receive Date: 20220211
  Receipt Date: 20220211
  Transmission Date: 20220423
  Serious: Yes (Hospitalization)
  Sender: FDA-Public Use
  Company Number: None

PATIENT
  Age: 23 Year
  Sex: Female
  Weight: 65 kg

DRUGS (1)
  1. ETHINYL ESTRADIOL\LEVONORGESTREL [Suspect]
     Active Substance: ETHINYL ESTRADIOL\LEVONORGESTREL
     Indication: Contraception
     Dosage: 1 DF, 1X/DAY
     Route: 048
     Dates: start: 20190331, end: 20211018

REACTIONS (3)
  - Inflammation [Recovering/Resolving]
  - Visual impairment [Recovering/Resolving]
  - Cranial nerve disorder [Recovering/Resolving]

NARRATIVE: CASE EVENT DATE: 20190711
